FAERS Safety Report 25289577 (Version 3)
Quarter: 2025Q2

REPORT INFORMATION
  Report Type: Spontaneous
  Country: US (occurrence: US)
  Receive Date: 20250509
  Receipt Date: 20250609
  Transmission Date: 20250717
  Serious: Yes (Hospitalization, Other)
  Sender: DR REDDYS
  Company Number: US-DRL-USA-USA/2025/04/006441

PATIENT
  Sex: Male
  Weight: 108.86 kg

DRUGS (1)
  1. FLUOROURACIL [Suspect]
     Active Substance: FLUOROURACIL
     Indication: Hyperkeratosis
     Dosage: USING IT EVERYDAY ONCE A DAY IN THE MORNING.
     Route: 061
     Dates: start: 20250417

REACTIONS (4)
  - Adverse event [Unknown]
  - Burning sensation [Recovered/Resolved with Sequelae]
  - Pain [Recovered/Resolved with Sequelae]
  - Discomfort [Recovered/Resolved with Sequelae]
